FAERS Safety Report 6114256-0 (Version None)
Quarter: 2009Q1

REPORT INFORMATION
  Report Type: 
  Country: None (occurrence: None)
  Receive Date: 20090312
  Receipt Date: 20081001
  Transmission Date: 20090719
  Serious: No
  Sender: FDA-Public Use
  Company Number: US-ABBOTT-08P-163-0479101-00

PATIENT
  Sex: Male
  Weight: 90.8 kg

DRUGS (5)
  1. DEPAKOTE [Suspect]
     Indication: MIGRAINE
     Route: 048
  2. SERTRALINE [Concomitant]
     Indication: ANXIETY
  3. TRAZODONE HCL [Concomitant]
     Indication: INSOMNIA
  4. AMLODIPINE [Concomitant]
     Indication: HYPERTENSION
     Route: 048
  5. OMEPRAZOLE SODIUM [Concomitant]
     Indication: GASTROOESOPHAGEAL REFLUX DISEASE
     Route: 048

REACTIONS (4)
  - ASTHENIA [None]
  - FATIGUE [None]
  - FEELING JITTERY [None]
  - TREMOR [None]
